FAERS Safety Report 10069061 (Version 3)
Quarter: 2014Q2

REPORT INFORMATION
  Report Type: Spontaneous
  Country: JP (occurrence: JP)
  Receive Date: 20140409
  Receipt Date: 20140509
  Transmission Date: 20141212
  Serious: Yes (Hospitalization, Other)
  Sender: FDA-Public Use
  Company Number: PHHY2014JP041190

PATIENT
  Age: 88 Year
  Sex: Male

DRUGS (11)
  1. EQUA [Suspect]
     Indication: TYPE 2 DIABETES MELLITUS
     Dosage: 100 MG, DAILY
     Route: 048
     Dates: start: 20130709, end: 20130827
  2. ACARBOSE [Suspect]
     Indication: TYPE 2 DIABETES MELLITUS
     Dosage: 300 MG, DAILY
     Route: 048
     Dates: start: 20130529, end: 20130827
  3. PREDNISOLONE [Suspect]
     Indication: UVEITIS
     Dosage: 30 MG
     Route: 048
     Dates: start: 20130501, end: 20130529
  4. PREDNISOLONE [Suspect]
     Dosage: 25 MG
     Route: 048
  5. PREDNISOLONE [Suspect]
     Dosage: 30 MG
     Route: 048
     Dates: start: 20130701, end: 20130827
  6. INSULIN [Concomitant]
     Indication: TYPE 2 DIABETES MELLITUS
  7. AMARYL [Concomitant]
     Indication: TYPE 2 DIABETES MELLITUS
     Dosage: 2 MG, DAILY
     Route: 048
     Dates: start: 1993, end: 20130827
  8. JANUVIA [Concomitant]
     Indication: TYPE 2 DIABETES MELLITUS
     Dosage: 50 MG, DAILY
     Route: 048
     Dates: start: 201211, end: 20130708
  9. ACTOS [Concomitant]
     Indication: TYPE 2 DIABETES MELLITUS
     Dosage: 15 MG, BID
     Route: 048
     Dates: start: 20121113, end: 20130827
  10. ACTOS [Concomitant]
     Dosage: 30 MG, UNK
     Route: 048
     Dates: start: 20121113, end: 20130827
  11. BLOPRESS [Concomitant]
     Indication: HYPERTENSION
     Dosage: 8 MG
     Route: 048

REACTIONS (5)
  - Pneumatosis intestinalis [Recovered/Resolved]
  - Hepatic enzyme increased [Recovered/Resolved]
  - Alanine aminotransferase increased [Recovered/Resolved]
  - Aspartate aminotransferase increased [Recovered/Resolved]
  - Diabetes mellitus inadequate control [Unknown]
